FAERS Safety Report 6727459-9 (Version None)
Quarter: 2010Q2

REPORT INFORMATION
  Report Type: 
  Country: None (occurrence: None)
  Receive Date: 20100517
  Receipt Date: 20100514
  Transmission Date: 20101027
  Serious: Yes (Death, Hospitalization)
  Sender: FDA-Public Use
  Company Number: PHHO2010TH01985

PATIENT
  Sex: Female

DRUGS (1)
  1. TASIGNA [Suspect]
     Indication: CHRONIC MYELOID LEUKAEMIA
     Dosage: 800 MG DAILY
     Route: 048
     Dates: start: 20080610, end: 20100202

REACTIONS (11)
  - ABDOMINAL PAIN UPPER [None]
  - BLAST CRISIS IN MYELOGENOUS LEUKAEMIA [None]
  - CEREBRAL HAEMORRHAGE [None]
  - CONFUSIONAL STATE [None]
  - LOSS OF CONSCIOUSNESS [None]
  - MALIGNANT NEOPLASM PROGRESSION [None]
  - PANCREATITIS ACUTE [None]
  - PYREXIA [None]
  - RENAL FAILURE ACUTE [None]
  - SHOCK [None]
  - SOMNOLENCE [None]
